FAERS Safety Report 18129799 (Version 1)
Quarter: 2020Q3

REPORT INFORMATION
  Report Type: Spontaneous
  Country: US (occurrence: US)
  Receive Date: 20200810
  Receipt Date: 20200810
  Transmission Date: 20201103
  Serious: Yes (Other)
  Sender: FDA-Public Use
  Company Number: None

PATIENT
  Age: 71 Year
  Sex: Female

DRUGS (11)
  1. FAMOTIDINE 20MG TABLETS [Concomitant]
     Active Substance: FAMOTIDINE
  2. VALSARTAN 320MG TABLETS [Concomitant]
     Active Substance: VALSARTAN
  3. MAGNESIUM 250MG TABLETS [Concomitant]
  4. PIQRAY [Suspect]
     Active Substance: ALPELISIB
     Indication: BREAST CANCER
     Route: 048
     Dates: start: 20200717
  5. K?DUR 10MEQ [Concomitant]
  6. ATROVENT HFA [Concomitant]
     Active Substance: IPRATROPIUM BROMIDE
  7. PRADAXA 150MG CAPSULES [Concomitant]
  8. VERAPAMIL 120MG SR CAPSULES [Concomitant]
  9. OCUVITE [Concomitant]
     Active Substance: VITAMINS
  10. PROAIR HFA [Concomitant]
     Active Substance: ALBUTEROL SULFATE
  11. VERAPAMIL 240MG SR CAPSULES [Concomitant]

REACTIONS (1)
  - Stomatitis [None]

NARRATIVE: CASE EVENT DATE: 20200801
